FAERS Safety Report 25701561 (Version 3)
Quarter: 2025Q4

REPORT INFORMATION
  Report Type: Spontaneous
  Country: US (occurrence: US)
  Receive Date: 20250819
  Receipt Date: 20251013
  Transmission Date: 20260118
  Serious: Yes (Other)
  Sender: PFIZER
  Company Number: US-PFIZER INC-PV202500099202

PATIENT
  Age: 32 Year
  Sex: Male

DRUGS (2)
  1. BENEFIX [Suspect]
     Active Substance: COAGULATION FACTOR IX RECOMBINANT HUMAN\ISOPROPYL ALCOHOL
     Indication: Factor IX deficiency
     Dosage: 2 DOSES OF BENEFIX A MONTH APART
  2. ALPROLIX [Concomitant]
     Active Substance: EFTRENONACOG ALFA
     Indication: Factor IX deficiency
     Dosage: UNK, WEEKLY

REACTIONS (6)
  - Haemorrhage [Not Recovered/Not Resolved]
  - Haemarthrosis [Not Recovered/Not Resolved]
  - Arthritis [Unknown]
  - Chondropathy [Unknown]
  - Eye injury [Unknown]
  - Pain [Not Recovered/Not Resolved]

NARRATIVE: CASE EVENT DATE: 20250701
